FAERS Safety Report 4944079-7 (Version None)
Quarter: 2006Q1

REPORT INFORMATION
  Report Type: 
  Country: None (occurrence: None)
  Receive Date: 20060315
  Receipt Date: 20060308
  Transmission Date: 20060701
  Serious: Yes (Disabling, Other)
  Sender: FDA-Public Use
  Company Number: GB-BOEHRINGER INGELHEIM PHARMACEUTICALS, INC.-2006-UK-01046UK

PATIENT
  Age: 62 Year
  Sex: Female

DRUGS (8)
  1. DIPYRIDAMOLE [Suspect]
     Route: 048
  2. CLOPIDOGREL [Suspect]
     Route: 048
  3. ATORVASTATIN CALCIUM [Concomitant]
     Route: 048
  4. PERINDOPRIL [Concomitant]
     Route: 048
  5. INDAPAMIDE [Concomitant]
     Route: 048
  6. LANSOPRAZOLE [Concomitant]
     Route: 048
  7. DOMPERIDONE [Concomitant]
     Route: 048
  8. GAVISCON [Concomitant]
     Route: 048

REACTIONS (1)
  - VITREOUS HAEMORRHAGE [None]
